FAERS Safety Report 4981657-3 (Version None)
Quarter: 2006Q2

REPORT INFORMATION
  Report Type: 
  Country: None (occurrence: None)
  Receive Date: 20060421
  Receipt Date: 20060421
  Transmission Date: 20061013
  Serious: Yes (Hospitalization)
  Sender: FDA-Public Use
  Company Number: None

PATIENT
  Age: 62 Year
  Sex: Female
  Weight: 69.4003 kg

DRUGS (10)
  1. PHOSPHOSODA UNFL (SODIUM PHOSPH DIBASIC/S.P. MONOBA [Suspect]
     Indication: COLONOSCOPY
     Dosage: 45 ML; 169;PO;X1;PO
     Route: 048
     Dates: start: 20060322
  2. PHOSPHOSODA UNFL (SODIUM PHOSPH DIBASIC/S.P. MONOBA [Suspect]
     Indication: COLONOSCOPY
     Dosage: 45 ML; 169;PO;X1;PO
     Route: 048
     Dates: start: 20060323
  3. LEXAPRO [Concomitant]
  4. CARDIZEM [Concomitant]
  5. ARIMEDEX [Concomitant]
  6. PREVACID [Concomitant]
  7. VITAMIN E [Concomitant]
  8. CALCIUM GLUCONATE [Concomitant]
  9. PROPOFOL [Concomitant]
  10. LIDOCAINE 2% [Concomitant]

REACTIONS (1)
  - BRADYCARDIA [None]
